FAERS Safety Report 16565404 (Version 1)
Quarter: 2019Q3

REPORT INFORMATION
  Report Type: Report from Study
  Country: US (occurrence: US)
  Receive Date: 20190712
  Receipt Date: 20190712
  Transmission Date: 20191004
  Serious: Yes (Hospitalization, Other)
  Sender: FDA-Public Use
  Company Number: US-GILEAD-2019-0417878

PATIENT
  Age: 8 Year
  Sex: Male

DRUGS (1)
  1. AZTREONAM LYSINE [Suspect]
     Active Substance: AZTREONAM LYSINE
     Indication: LUNG DISORDER
     Dosage: 75 MG, TID, FOR 28 DAYS, ALTERNATE EVERY 4 WEEK WITH KITABIS
     Route: 055
     Dates: start: 20170811

REACTIONS (2)
  - Off label use [Not Recovered/Not Resolved]
  - Cystic fibrosis [Unknown]

NARRATIVE: CASE EVENT DATE: 20170811
